FAERS Safety Report 12828776 (Version 1)
Quarter: 2016Q4

REPORT INFORMATION
  Report Type: Spontaneous
  Country: US (occurrence: US)
  Receive Date: 20161007
  Receipt Date: 20161007
  Transmission Date: 20170207
  Serious: No
  Sender: FDA-Public Use
  Company Number: US-SA-2015SA188105

PATIENT
  Age: 67 Year
  Sex: Female

DRUGS (11)
  1. GABAPENTIN. [Concomitant]
     Active Substance: GABAPENTIN
  2. NORCO [Concomitant]
     Active Substance: ACETAMINOPHEN\HYDROCODONE BITARTRATE
  3. PRIMIDONE. [Concomitant]
     Active Substance: PRIMIDONE
  4. METHYLTESTOSTERONE. [Concomitant]
     Active Substance: METHYLTESTOSTERONE
  5. AMBIEN [Concomitant]
     Active Substance: ZOLPIDEM TARTRATE
  6. ADDERALL [Concomitant]
     Active Substance: AMPHETAMINE ASPARTATE\AMPHETAMINE SULFATE\DEXTROAMPHETAMINE SACCHARATE\DEXTROAMPHETAMINE SULFATE
  7. AUBAGIO [Suspect]
     Active Substance: TERIFLUNOMIDE
     Indication: MULTIPLE SCLEROSIS
     Route: 048
  8. ATENOLOL. [Concomitant]
     Active Substance: ATENOLOL
  9. DEXILANT [Concomitant]
     Active Substance: DEXLANSOPRAZOLE
  10. KEPPRA [Concomitant]
     Active Substance: LEVETIRACETAM
  11. CYMBALTA [Concomitant]
     Active Substance: DULOXETINE HYDROCHLORIDE

REACTIONS (3)
  - Fatigue [Unknown]
  - Alopecia [Unknown]
  - Depression [Unknown]
